FAERS Safety Report 21528023 (Version 1)
Quarter: 2022Q4

REPORT INFORMATION
  Report Type: Spontaneous
  Country: CH (occurrence: CH)
  Receive Date: 20221031
  Receipt Date: 20221031
  Transmission Date: 20230113
  Serious: Yes (Hospitalization)
  Sender: FDA-Public Use
  Company Number: CH-GUERBET / GUERBET AG-CH-20220044

PATIENT
  Age: 67 Year
  Sex: Female

DRUGS (6)
  1. OPTIRAY [Suspect]
     Active Substance: IOVERSOL
     Indication: Computerised tomogram abdomen
     Route: 042
     Dates: start: 20221007, end: 20221007
  2. BARIUM SULFATE [Suspect]
     Active Substance: BARIUM SULFATE
     Indication: Computerised tomogram abdomen
     Route: 048
     Dates: start: 20221007, end: 20221007
  3. PREDNISONE [Concomitant]
     Active Substance: PREDNISONE
     Indication: Product used for unknown indication
     Dosage: A DAY BEFORE THE EXAMINATION
     Route: 048
     Dates: start: 20221006, end: 20221006
  4. PREDNISONE [Concomitant]
     Active Substance: PREDNISONE
     Route: 048
     Dates: start: 20221007, end: 20221007
  5. LEVOTHYROXINE [Concomitant]
     Active Substance: LEVOTHYROXINE
     Indication: Product used for unknown indication
     Route: 065
  6. ZOLPIDEM [Concomitant]
     Active Substance: ZOLPIDEM TARTRATE
     Indication: Product used for unknown indication
     Route: 065

REACTIONS (3)
  - Acute generalised exanthematous pustulosis [Not Recovered/Not Resolved]
  - Pyrexia [Unknown]
  - Leukocytosis [Unknown]

NARRATIVE: CASE EVENT DATE: 20221007
